FAERS Safety Report 17801936 (Version 1)
Quarter: 2020Q2

REPORT INFORMATION
  Report Type: Spontaneous
  Country: DE (occurrence: DE)
  Receive Date: 20200519
  Receipt Date: 20200519
  Transmission Date: 20200714
  Serious: Yes (Hospitalization, Other)
  Sender: FDA-Public Use
  Company Number: DE-SAMSUNG BIOEPIS-SB-2020-16994

PATIENT
  Sex: Male
  Weight: 66 kg

DRUGS (4)
  1. FLIXABI [Suspect]
     Active Substance: INFLIXIMAB
     Indication: CROHN^S DISEASE
     Dosage: VIAL
     Route: 042
     Dates: start: 20200327
  2. FLIXABI [Suspect]
     Active Substance: INFLIXIMAB
     Dosage: VIAL
     Route: 042
     Dates: start: 20200511
  3. PREDNISOLON [Concomitant]
     Active Substance: PREDNISOLONE
     Indication: ILL-DEFINED DISORDER
     Route: 065
  4. FLIXABI [Suspect]
     Active Substance: INFLIXIMAB
     Dosage: VIAL
     Route: 042
     Dates: start: 20200409

REACTIONS (1)
  - Crohn^s disease [Recovered/Resolved]
